FAERS Safety Report 13718479 (Version 1)
Quarter: 2017Q3

REPORT INFORMATION
  Report Type: Other
  Country: None (occurrence: US)
  Receive Date: 20170705
  Receipt Date: 20170705
  Transmission Date: 20171127
  Serious: Yes (Other)
  Sender: FDA-Public Use
  Company Number: US-GUTHY-RENKER LLC-2022927

PATIENT
  Age: 69 Year
  Sex: Female

DRUGS (5)
  1. POTASSIUM, VITAMIN D , AND MULTIVITAMINS. [Concomitant]
  2. PROACTIV REPAIRING TREATMENT [Suspect]
     Active Substance: BENZOYL PEROXIDE
     Route: 061
     Dates: start: 20160324, end: 20160327
  3. PROACTIV SOLUTION RENEWING CLEANSER [Suspect]
     Active Substance: BENZOYL PEROXIDE
     Indication: ACNE
     Route: 061
     Dates: start: 20160324, end: 20160327
  4. ADVAIR DISKUS, PROAIR INHALER, HYDROCODONE, LORATADINE, ENALAPRIL [Concomitant]
  5. FUROSEMIDE, SINGULAIR, LIDOCAINE PATCHES,CLARINEX, SULFADIAZENE CREAM [Concomitant]

REACTIONS (3)
  - Respiration abnormal [None]
  - Urticaria [Recovering/Resolving]
  - Throat tightness [None]

NARRATIVE: CASE EVENT DATE: 20160326
